FAERS Safety Report 18711890 (Version 1)
Quarter: 2021Q1

REPORT INFORMATION
  Report Type: Spontaneous
  Country: US (occurrence: US)
  Receive Date: 20210107
  Receipt Date: 20210107
  Transmission Date: 20210419
  Serious: Yes (Other)
  Sender: FDA-Public Use
  Company Number: US-PFIZER INC-2021000094

PATIENT
  Age: 56 Year
  Sex: Female

DRUGS (2)
  1. COUMADIN [Suspect]
     Active Substance: WARFARIN SODIUM
     Indication: RENAL ARTERY THROMBOSIS
     Dosage: UNK
  2. HEPARIN SODIUM. [Suspect]
     Active Substance: HEPARIN SODIUM
     Indication: RENAL ARTERY THROMBOSIS
     Dosage: UNK
     Route: 042

REACTIONS (4)
  - Haemorrhage intracranial [Recovered/Resolved]
  - Drug ineffective [Unknown]
  - Status epilepticus [Unknown]
  - Blood creatinine increased [Unknown]
